FAERS Safety Report 7121931-8 (Version None)
Quarter: 2010Q4

REPORT INFORMATION
  Report Type: 
  Country: None (occurrence: None)
  Receive Date: 20101124
  Receipt Date: 20101110
  Transmission Date: 20110411
  Serious: Yes (Other)
  Sender: FDA-Public Use
  Company Number: US-PFIZER INC-2010145168

PATIENT
  Sex: Male

DRUGS (2)
  1. VIAGRA [Suspect]
     Dosage: 50 MG, AS NEEDED
  2. ALCOHOL [Interacting]

REACTIONS (7)
  - DRUG INTERACTION [None]
  - ERECTION INCREASED [None]
  - HEART RATE IRREGULAR [None]
  - PALPITATIONS [None]
  - SENSORY LOSS [None]
  - SEXUAL DYSFUNCTION [None]
  - VISION BLURRED [None]
